FAERS Safety Report 8905838 (Version 2)
Quarter: 2012Q4

REPORT INFORMATION
  Report Type: 
  Country: US (occurrence: US)
  Receive Date: 20121113
  Receipt Date: 20121227
  Transmission Date: 20130627
  Serious: Yes (Other)
  Sender: FDA-Public Use
  Company Number: US-PFIZER INC-2012278589

PATIENT
  Age: 77 Year
  Sex: Male

DRUGS (2)
  1. REVATIO [Suspect]
     Dosage: UNK
  2. LETAIRIS [Suspect]
     Indication: PRIMARY PULMONARY HYPERTENSION
     Dosage: 10 mg, 1x/day
     Route: 048
     Dates: start: 20111221

REACTIONS (2)
  - Spinal column stenosis [Unknown]
  - Oedema peripheral [Unknown]
